FAERS Safety Report 19924244 (Version 10)
Quarter: 2022Q3

REPORT INFORMATION
  Report Type: Spontaneous
  Country: US (occurrence: US)
  Receive Date: 20211006
  Receipt Date: 20220929
  Transmission Date: 20221027
  Serious: Yes (Other)
  Sender: FDA-Public Use
  Company Number: US-ELI_LILLY_AND_COMPANY-US202101002803

PATIENT
  Age: 62 Year
  Sex: Female

DRUGS (12)
  1. ADCIRCA [Suspect]
     Active Substance: TADALAFIL
     Indication: Pulmonary arterial hypertension
     Dosage: 40 MG, DAILY
     Route: 048
     Dates: start: 20210105
  2. ORENITRAM [Suspect]
     Active Substance: TREPROSTINIL
     Indication: Pulmonary arterial hypertension
     Dosage: 1.25 MG, TID
     Route: 048
     Dates: start: 20210723, end: 202111
  3. ORENITRAM [Suspect]
     Active Substance: TREPROSTINIL
     Dosage: 1 MG, TID
     Route: 048
     Dates: start: 202111
  4. REMODULIN [Suspect]
     Active Substance: TREPROSTINIL
     Indication: Pulmonary arterial hypertension
     Dosage: 18.8 NG, (NG/KG/MIN)
     Route: 058
  5. REMODULIN [Suspect]
     Active Substance: TREPROSTINIL
     Dosage: 24.8 NG/KG/MIN, 0.016 ML/HR
     Route: 058
     Dates: start: 20211116
  6. REMODULIN [Suspect]
     Active Substance: TREPROSTINIL
     Dosage: 33.8 NG/KG/MIN, DAILY
     Route: 058
     Dates: start: 20211116
  7. REMODULIN [Suspect]
     Active Substance: TREPROSTINIL
     Dosage: 21.8 NG/KG/MIN, DAILY
     Route: 058
     Dates: start: 20211117
  8. REMODULIN [Suspect]
     Active Substance: TREPROSTINIL
     Dosage: UNK UNK, UNKNOWN (DOSE INCREASED)
     Route: 058
     Dates: start: 20220713
  9. REMODULIN [Suspect]
     Active Substance: TREPROSTINIL
     Dosage: 33.8 NG/KG/MIN, OTHER (CONTINUOUS) (DOSE DECREASED)
     Route: 058
     Dates: start: 20220719
  10. BARDOXOLONE [Suspect]
     Active Substance: BARDOXOLONE
     Indication: Product used for unknown indication
     Dosage: UNK UNK, UNKNOWN
     Route: 065
     Dates: start: 2015, end: 2022
  11. BARDOXOLONE [Suspect]
     Active Substance: BARDOXOLONE
     Dosage: UNK UNK, UNKNOWN
     Route: 065
     Dates: start: 202208
  12. LOPERAMIDE [Concomitant]
     Active Substance: LOPERAMIDE
     Indication: Diarrhoea
     Dosage: UNK UNK, DAILY
     Route: 065

REACTIONS (21)
  - Blood iron decreased [Unknown]
  - Cardiomegaly [Unknown]
  - Pain in jaw [Unknown]
  - Face injury [Unknown]
  - Joint injury [Unknown]
  - Fall [Unknown]
  - Wound secretion [Unknown]
  - Concussion [Unknown]
  - Feeling abnormal [Unknown]
  - Weight decreased [Unknown]
  - Cough [Recovered/Resolved]
  - Diarrhoea [Not Recovered/Not Resolved]
  - Pruritus [Unknown]
  - Dyspnoea [Recovering/Resolving]
  - Headache [Unknown]
  - Fatigue [Unknown]
  - Abdominal pain [Unknown]
  - Vomiting [Recovered/Resolved]
  - Nausea [Unknown]
  - Headache [Recovered/Resolved]
  - Rash [Unknown]

NARRATIVE: CASE EVENT DATE: 20211224
